FAERS Safety Report 6252347-4 (Version None)
Quarter: 2009Q2

REPORT INFORMATION
  Report Type: 
  Country: None (occurrence: None)
  Receive Date: 20090629
  Receipt Date: 20090629
  Transmission Date: 20091009
  Serious: Yes (Disabling)
  Sender: FDA-Public Use
  Company Number: None

PATIENT
  Age: 61 Year
  Sex: Female
  Weight: 61.2356 kg

DRUGS (2)
  1. ACTONEL [Suspect]
     Indication: OSTEOPENIA
     Dosage: MONTHLY ONCE MOUTH
     Route: 048
     Dates: start: 20090307
  2. ACTONEL [Suspect]
     Indication: OSTEOPOROSIS
     Dosage: MONTHLY ONCE MOUTH
     Route: 048
     Dates: start: 20090307

REACTIONS (3)
  - DIARRHOEA [None]
  - INFLUENZA LIKE ILLNESS [None]
  - PAIN IN EXTREMITY [None]
